FAERS Safety Report 9169832 (Version 1)
Quarter: 2013Q1

REPORT INFORMATION
  Report Type: Spontaneous
  Country: IT (occurrence: IT)
  Receive Date: 20130319
  Receipt Date: 20130319
  Transmission Date: 20140127
  Serious: Yes (Hospitalization)
  Sender: FDA-Public Use
  Company Number: PHHY2013IT026115

PATIENT
  Age: 49 Year
  Sex: Male

DRUGS (2)
  1. ZOLPIDEM [Suspect]
     Indication: DEPRESSION
     Dosage: 10 DF, UNK
     Route: 048
     Dates: start: 20130115, end: 20130115
  2. LORAZEPAM [Suspect]
     Indication: DEPRESSION
     Dosage: 10 DF, UNK
     Route: 048
     Dates: start: 20130115, end: 20130115

REACTIONS (2)
  - Hypokinesia [Recovered/Resolved]
  - Drug abuse [Recovered/Resolved]
